FAERS Safety Report 13142251 (Version 1)
Quarter: 2017Q1

REPORT INFORMATION
  Report Type: Spontaneous
  Country: GB (occurrence: GB)
  Receive Date: 20170124
  Receipt Date: 20170124
  Transmission Date: 20170428
  Serious: Yes (Other)
  Sender: FDA-Public Use
  Company Number: GB-TEVA-730659ACC

PATIENT
  Age: 81 Year
  Sex: Female
  Weight: 78 kg

DRUGS (8)
  1. AMITRIPTYLINE HYDROCHLORIDE. [Concomitant]
     Active Substance: AMITRIPTYLINE HYDROCHLORIDE
     Dosage: 2 DOSAGE FORMS DAILY;
     Dates: start: 20150618, end: 20161229
  2. CALCIUM CARBONATE. [Concomitant]
     Active Substance: CALCIUM CARBONATE
     Dosage: 2 DOSAGE FORMS DAILY;
     Dates: start: 20161026, end: 20161229
  3. SIMVASTATIN. [Suspect]
     Active Substance: SIMVASTATIN
     Dates: start: 20161230
  4. MELOXICAM. [Concomitant]
     Active Substance: MELOXICAM
     Dosage: 1 DOSAGE FORMS DAILY;
     Dates: start: 20161026, end: 20161026
  5. PARACETAMOL [Concomitant]
     Active Substance: ACETAMINOPHEN
     Dosage: 1 OR 2 TABLETS FOUR TIMES DAILY
     Dates: start: 20160622, end: 20161229
  6. SOLIFENACIN [Concomitant]
     Active Substance: SOLIFENACIN
     Dosage: 1 DOSAGE FORMS DAILY;
     Dates: start: 20140804, end: 20161229
  7. ALENDRONIC ACID [Concomitant]
     Active Substance: ALENDRONIC ACID
     Dosage: ONE A WEEK, ON EMPTY STOMACH, AT LEAST 30 MINUTES
     Dates: start: 20161026, end: 20161229
  8. OMEPRAZOLE. [Concomitant]
     Active Substance: OMEPRAZOLE
     Indication: DYSPEPSIA
     Dates: start: 20131210, end: 20161229

REACTIONS (2)
  - Poliomyelitis [Unknown]
  - Hypersensitivity [Unknown]

NARRATIVE: CASE EVENT DATE: 20170103
